FAERS Safety Report 9934217 (Version 1)
Quarter: 2014Q1

REPORT INFORMATION
  Report Type: Report from Study
  Country: BR (occurrence: BR)
  Receive Date: 20140228
  Receipt Date: 20140228
  Transmission Date: 20141002
  Serious: Yes (Disabling)
  Sender: FDA-Public Use
  Company Number: PHHY2014BR022717

PATIENT
  Sex: Female
  Weight: 75 kg

DRUGS (5)
  1. TEGRETOL [Suspect]
     Indication: CONVULSION
     Dosage: 2 TABLETS (1 IN MORNING AND 1 IN NIGHT)
     Route: 048
  2. ANAFRANIL SR [Concomitant]
     Indication: OBSESSIVE-COMPULSIVE DISORDER
     Dosage: 75 MG
  3. ABILIFY [Concomitant]
     Indication: COMPULSIONS
     Dosage: 15 MG
  4. SEROQUEL [Concomitant]
     Indication: COMPULSIONS
     Dosage: 200 MG
  5. OMEPRAZOLE [Concomitant]
     Indication: ABDOMINAL DISCOMFORT
     Dosage: 20 MG

REACTIONS (1)
  - Paraplegia [Recovering/Resolving]
